FAERS Safety Report 14620927 (Version 1)
Quarter: 2018Q1

REPORT INFORMATION
  Report Type: Spontaneous
  Country: US (occurrence: US)
  Receive Date: 20180309
  Receipt Date: 20180309
  Transmission Date: 20180509
  Serious: Yes (Hospitalization)
  Sender: FDA-Public Use
  Company Number: US-BIOMARINAP-US-2018-117309

PATIENT
  Sex: Male
  Weight: 44.9 kg

DRUGS (1)
  1. NAGLAZYME [Suspect]
     Active Substance: GALSULFASE
     Indication: PRODUCT USED FOR UNKNOWN INDICATION
     Dosage: ,
     Route: 042
     Dates: start: 20110501

REACTIONS (2)
  - Oesophagitis [Unknown]
  - Pharyngeal oedema [Unknown]
